FAERS Safety Report 9093086 (Version 2)
Quarter: 2013Q2

REPORT INFORMATION
  Report Type: Spontaneous
  Country: DK (occurrence: DK)
  Receive Date: 20130201
  Receipt Date: 20130527
  Transmission Date: 20140414
  Serious: Yes (Hospitalization)
  Sender: FDA-Public Use
  Company Number: DK-PFIZER INC-2013037862

PATIENT
  Age: 30 Year
  Sex: Female
  Weight: 73 kg

DRUGS (1)
  1. DALACIN [Suspect]
     Indication: SIALOADENITIS
     Dosage: UNK
     Dates: start: 20121118, end: 20121128

REACTIONS (1)
  - Abortion missed [Not Recovered/Not Resolved]
